FAERS Safety Report 5634553-2 (Version None)
Quarter: 2008Q1

REPORT INFORMATION
  Report Type: 
  Country: None (occurrence: None)
  Receive Date: 20080222
  Receipt Date: 20080215
  Transmission Date: 20080703
  Serious: Yes (Other)
  Sender: FDA-Public Use
  Company Number: PHBS2008ZA01115

PATIENT
  Age: 64 Year
  Sex: Male

DRUGS (3)
  1. PROSCAR [Concomitant]
  2. ATORVASTATIN CALCIUM [Concomitant]
  3. TEGRETOL [Suspect]
     Indication: EPILEPSY
     Dosage: 600MG/DAY

REACTIONS (1)
  - OSTEONECROSIS [None]
